FAERS Safety Report 9710239 (Version 1)
Quarter: 2013Q4

REPORT INFORMATION
  Report Type: Spontaneous
  Country: GB (occurrence: GB)
  Receive Date: 20131126
  Receipt Date: 20131126
  Transmission Date: 20140711
  Serious: Yes (Death, Other)
  Sender: FDA-Public Use
  Company Number: GB-JNJFOC-20131111435

PATIENT
  Sex: 0

DRUGS (5)
  1. DOXORUBICIN HYDROCHLORIDE [Suspect]
     Indication: CHEMOTHERAPY
     Dosage: 30MG/M2/D, ON DAYS 1 AND 5
     Route: 042
  2. CARBOPLATIN [Suspect]
     Indication: CHEMOTHERAPY
     Dosage: DAILY FOR 3 DAYS
     Route: 065
  3. ETOPOSIDE [Suspect]
     Indication: CHEMOTHERAPY
     Dosage: DAILY FOR 3 DAYS
     Route: 065
  4. CYCLOPHOSPHAMIDE [Suspect]
     Indication: CHEMOTHERAPY
     Dosage: 300 MG/M2/D, FOR 5 DAYS
     Route: 065
  5. VINCRISTINE [Suspect]
     Indication: CHEMOTHERAPY
     Dosage: ON DAYS 1 AND  5
     Route: 065

REACTIONS (6)
  - Neuroblastoma [Fatal]
  - Toxicity to various agents [Unknown]
  - Disease progression [Unknown]
  - Gastrointestinal toxicity [Unknown]
  - Toxicity to various agents [Unknown]
  - Off label use [Unknown]
